FAERS Safety Report 17162309 (Version 1)
Quarter: 2019Q4

REPORT INFORMATION
  Report Type: Spontaneous
  Country: GB (occurrence: GB)
  Receive Date: 20191217
  Receipt Date: 20191217
  Transmission Date: 20200122
  Serious: Yes (Other)
  Sender: FDA-Public Use
  Company Number: GB-AUROBINDO-AUR-APL-2019-104880

PATIENT
  Age: 40 Year
  Sex: Female
  Weight: 88 kg

DRUGS (4)
  1. ONDANSETRON FILM-COATED TABLET [Suspect]
     Active Substance: ONDANSETRON
     Indication: PRODUCT USED FOR UNKNOWN INDICATION
     Dosage: 4 MILLIGRAM
     Route: 065
  2. LYMECYCLINE [Concomitant]
     Active Substance: LYMECYCLINE
     Indication: ACNE
     Dosage: 1 DOSAGE FORM, ONCE A DAY
     Dates: start: 20191008
  3. AMITRIPTYLINE HYDROCHLORIDE. [Concomitant]
     Active Substance: AMITRIPTYLINE HYDROCHLORIDE
     Indication: PAIN
     Dosage: 1 DOSAGE FORM, ONCE A DAY, AT NIGHT
     Route: 065
     Dates: start: 20190918
  4. CODEINE PHOSPHATE [Concomitant]
     Active Substance: CODEINE PHOSPHATE
     Indication: PRODUCT USED FOR UNKNOWN INDICATION
     Dosage: TAKE ONE OR TWO TABLETS UPTO FOUR TIMES/DAY
     Route: 065
     Dates: start: 20190917

REACTIONS (3)
  - Balance disorder [Unknown]
  - Paraesthesia [Recovered/Resolved]
  - Dizziness [Recovered/Resolved]
